FAERS Safety Report 4269045-9 (Version None)
Quarter: 2004Q1

REPORT INFORMATION
  Report Type: 
  Country: None (occurrence: None)
  Receive Date: 20040108
  Receipt Date: 20031231
  Transmission Date: 20041129
  Serious: Yes (Other)
  Sender: FDA-Public Use
  Company Number: GB-JNJFOC-20031101119

PATIENT
  Age: 4 Year
  Sex: Female

DRUGS (2)
  1. DAKTARIN (MICONAZOLE) CREAM [Suspect]
     Indication: ECZEMA
     Dosage: 2 IN 1 DAY, TOPICAL
     Route: 061
     Dates: start: 20031029, end: 20031103
  2. EMULSIFYING OINTMENT (AQUEOUS CREAM) [Concomitant]

REACTIONS (2)
  - CONDITION AGGRAVATED [None]
  - ECZEMA [None]
